FAERS Safety Report 14243433 (Version 2)
Quarter: 2017Q4

REPORT INFORMATION
  Report Type: Spontaneous
  Country: CA (occurrence: CA)
  Receive Date: 20171201
  Receipt Date: 20171213
  Transmission Date: 20180321
  Serious: Yes (Hospitalization, Other)
  Sender: FDA-Public Use
  Company Number: CA-IGSA-SR10005538

PATIENT
  Age: 51 Year
  Sex: Female

DRUGS (12)
  1. SYNTHROID [Concomitant]
     Active Substance: LEVOTHYROXINE SODIUM
     Dosage: UNK
     Dates: start: 201701
  2. ALTACE [Concomitant]
     Active Substance: RAMIPRIL
     Dosage: UNK
     Dates: start: 201701
  3. MORPHINE [Concomitant]
     Active Substance: MORPHINE
     Dosage: UNK UNK, PRN
  4. SALICYLIC ACID. [Concomitant]
     Active Substance: SALICYLIC ACID
     Dosage: UNK
     Dates: start: 201701, end: 20170207
  5. METOPROLOL. [Concomitant]
     Active Substance: METOPROLOL
  6. GAMUNEX [Suspect]
     Active Substance: HUMAN IMMUNOGLOBULIN G
     Dosage: UNK
     Route: 042
     Dates: start: 20170307
  7. DECADRON [Concomitant]
     Active Substance: DEXAMETHASONE
     Dosage: UNK
     Dates: start: 201701, end: 20170207
  8. AXITINIB [Concomitant]
     Active Substance: AXITINIB
     Dosage: UNK
     Dates: start: 201701, end: 20170207
  9. GAMUNEX [Suspect]
     Active Substance: HUMAN IMMUNOGLOBULIN G
     Indication: IMMUNE THROMBOCYTOPENIC PURPURA
     Dosage: 20 G, UNK
     Route: 042
     Dates: start: 20170206, end: 20170206
  10. NORVASC [Concomitant]
     Active Substance: AMLODIPINE BESYLATE
     Dosage: UNK
     Dates: start: 201701, end: 20170207
  11. RAMIPRIL. [Concomitant]
     Active Substance: RAMIPRIL
     Dosage: UNK
     Dates: start: 201701, end: 20170207
  12. CRESTOR [Concomitant]
     Active Substance: ROSUVASTATIN CALCIUM
     Dosage: UNK
     Dates: end: 20170207

REACTIONS (16)
  - Haemoglobin decreased [Recovered/Resolved]
  - Tachycardia [Recovered/Resolved]
  - Haemoglobinaemia [Recovered/Resolved]
  - Blood pressure decreased [Recovered/Resolved]
  - Depressed level of consciousness [Recovered/Resolved]
  - Haematuria [None]
  - Gastrointestinal disorder [Recovered/Resolved]
  - Pain [Recovered/Resolved]
  - Shock [Recovered/Resolved]
  - Haemolysis [Recovered/Resolved]
  - Pyrexia [Recovered/Resolved]
  - Vomiting [Recovered/Resolved]
  - Blood pressure abnormal [Recovered/Resolved]
  - Asthenia [Recovered/Resolved]
  - Diarrhoea [Recovered/Resolved]
  - Somnolence [Recovered/Resolved]

NARRATIVE: CASE EVENT DATE: 20170206
